FAERS Safety Report 24259454 (Version 2)
Quarter: 2025Q1

REPORT INFORMATION
  Report Type: Report from Study
  Country: US (occurrence: US)
  Receive Date: 20240828
  Receipt Date: 20250328
  Transmission Date: 20250409
  Serious: Yes (Other)
  Sender: SUNOVION
  Company Number: US-SUMITOMO PHARMA SWITZERLAND GMBH-2024SPA001548

PATIENT

DRUGS (4)
  1. ORGOVYX [Suspect]
     Active Substance: RELUGOLIX
     Indication: Prostate cancer
     Route: 048
  2. ORGOVYX [Suspect]
     Active Substance: RELUGOLIX
     Dosage: 120 MG, QD
     Route: 048
     Dates: start: 20230628
  3. BOTOX [Suspect]
     Active Substance: ONABOTULINUMTOXINA
     Route: 065
  4. XTANDI [Concomitant]
     Active Substance: ENZALUTAMIDE
     Indication: Product used for unknown indication
     Route: 065

REACTIONS (14)
  - Diabetes mellitus [Unknown]
  - Neuropathy peripheral [Unknown]
  - Dysuria [Unknown]
  - Cystitis radiation [Unknown]
  - Intervertebral disc protrusion [Unknown]
  - Burning sensation [Unknown]
  - Pain [Unknown]
  - Neuralgia [Unknown]
  - Urinary incontinence [Unknown]
  - Feeling abnormal [Unknown]
  - Back pain [Unknown]
  - Pain in extremity [Unknown]
  - Fatigue [Unknown]
  - Insomnia [Unknown]
